FAERS Safety Report 8231590-9 (Version None)
Quarter: 2012Q1

REPORT INFORMATION
  Report Type: 
  Country: None (occurrence: None)
  Receive Date: 20120320
  Receipt Date: 20111109
  Transmission Date: 20120608
  Serious: Yes (Hospitalization, Other)
  Sender: FDA-Public Use
  Company Number: THQ2011A06720

PATIENT
  Age: 67 Year
  Sex: Male

DRUGS (17)
  1. ATORVASTATIN [Concomitant]
  2. AMLODIPINE [Concomitant]
  3. ACETAMINOPHEN [Concomitant]
  4. DICLOPHENAC (DICLOFENAC SODIUM) [Concomitant]
  5. IBUPROFEN [Concomitant]
  6. VILDAGLIPTIN [Concomitant]
  7. METFORMIN HCL [Concomitant]
  8. DOBICA (CALCIUM DOBESILATE) [Concomitant]
  9. METAMIZOLE [Concomitant]
  10. LOSARTAN POTASSIUM [Concomitant]
  11. TRAMADOLE (TRAMADOL HYDROCHLORIDE) [Concomitant]
  12. ACTOS [Suspect]
     Indication: TYPE 2 DIABETES MELLITUS
     Dosage: 30 MG (30 MG,1 IN 1 D)PER ORAL
     Route: 048
     Dates: start: 20081111, end: 20110815
  13. TAMSULOISIN (TAMSULOSIN HYDROCHLORIDE) [Concomitant]
  14. OMEPRAZOLE [Concomitant]
  15. EXENATIDE [Concomitant]
  16. HYDROCHLOROTHIAZIDE [Concomitant]
  17. NIMESULIDE [Concomitant]

REACTIONS (2)
  - BLADDER TRANSITIONAL CELL CARCINOMA [None]
  - FATIGUE [None]
